FAERS Safety Report 4288702-1 (Version None)
Quarter: 2004Q1

REPORT INFORMATION
  Report Type: 
  Country: None (occurrence: None)
  Receive Date: 20040209
  Receipt Date: 20030908
  Transmission Date: 20041129
  Serious: Yes (Hospitalization, Other)
  Sender: FDA-Public Use
  Company Number: WAES 0309USA00839

PATIENT
  Age: 61 Year
  Sex: Male
  Weight: 63 kg

DRUGS (11)
  1. TYLENOL (CAPLET) [Concomitant]
  2. ACETAMINOPHEN AND PROPOXYPHENE NAPSYLATE [Concomitant]
  3. XANAX [Concomitant]
  4. ASPIRIN [Concomitant]
  5. LIBRAX CAPSULES [Concomitant]
  6. CYCLOBENZAPRINE HYDROCHLORIDE [Concomitant]
  7. ALLEGRA [Concomitant]
  8. PRILOSEC [Concomitant]
  9. ZANTAC [Concomitant]
  10. VIOXX [Suspect]
     Indication: LOCALISED OSTEOARTHRITIS
     Route: 048
     Dates: start: 19991006
  11. VIOXX [Suspect]
     Indication: TENDONITIS
     Route: 048
     Dates: start: 19991006

REACTIONS (18)
  - ANXIETY DISORDER [None]
  - AZOTAEMIA [None]
  - CHEST PAIN [None]
  - COLONIC POLYP [None]
  - CORONARY ARTERY DISEASE [None]
  - CORONARY ARTERY STENOSIS [None]
  - EPIDERMAL NAEVUS [None]
  - FALL [None]
  - GENERALISED ANXIETY DISORDER [None]
  - HAEMATOMA [None]
  - HYPERCHOLESTEROLAEMIA [None]
  - HYPERTENSION [None]
  - INTERVERTEBRAL DISC DEGENERATION [None]
  - IRRITABLE BOWEL SYNDROME [None]
  - MYOCARDIAL INFARCTION [None]
  - SLEEP DISORDER [None]
  - TENDONITIS [None]
  - URINARY TRACT INFECTION [None]
